FAERS Safety Report 13025902 (Version 1)
Quarter: 2016Q4

REPORT INFORMATION
  Report Type: Spontaneous
  Country: US (occurrence: US)
  Receive Date: 20161214
  Receipt Date: 20161214
  Transmission Date: 20170207
  Serious: No
  Sender: FDA-Public Use
  Company Number: US-APOTEX-2016AP014467

PATIENT
  Age: 56 Year
  Sex: Female

DRUGS (3)
  1. FENTANYL TRANSDERMAL SYSTEM [Suspect]
     Active Substance: FENTANYL
     Indication: PAIN
     Dosage: 25 MCG EVERY 72 HOURS
     Route: 062
     Dates: start: 20161011, end: 20161013
  2. VITADERMA [Concomitant]
     Indication: PRODUCT USED FOR UNKNOWN INDICATION
     Route: 065
  3. VICODIN [Concomitant]
     Active Substance: ACETAMINOPHEN\HYDROCODONE BITARTRATE
     Indication: PRODUCT USED FOR UNKNOWN INDICATION
     Route: 065

REACTIONS (7)
  - Feeling of body temperature change [Recovering/Resolving]
  - Drug ineffective [Recovering/Resolving]
  - Overdose [Recovering/Resolving]
  - Product substitution issue [Recovering/Resolving]
  - Nausea [Recovering/Resolving]
  - Abdominal discomfort [Recovering/Resolving]
  - Feeling abnormal [Recovering/Resolving]

NARRATIVE: CASE EVENT DATE: 20161012
